FAERS Safety Report 5427216-X (Version None)
Quarter: 2007Q3

REPORT INFORMATION
  Report Type: 
  Country: None (occurrence: None)
  Receive Date: 20070828
  Receipt Date: 20070817
  Transmission Date: 20080115
  Serious: Yes (Other)
  Sender: FDA-Public Use
  Company Number: PHEH2007US05421

PATIENT
  Age: 66 Year
  Sex: Female
  Weight: 58.956 kg

DRUGS (11)
  1. ZELNORM [Suspect]
     Indication: IRRITABLE BOWEL SYNDROME
     Dosage: 6 MG, BID
     Route: 048
     Dates: start: 20040515, end: 20070401
  2. ALTACE [Concomitant]
  3. BETA BLOCKING AGENTS [Concomitant]
     Dates: start: 20070316
  4. EVISTA [Concomitant]
  5. ASPIRIN [Concomitant]
  6. POTASSIUM CHLORIDE [Concomitant]
  7. CALCIUM [Concomitant]
  8. GLUCOSAMINE SULFATE [Concomitant]
  9. CEREFOLIN [Concomitant]
  10. POTASSIUM CHLORIDE [Concomitant]
  11. DALMANE [Concomitant]

REACTIONS (12)
  - BLOOD PRESSURE DECREASED [None]
  - CEREBROVASCULAR ACCIDENT [None]
  - DEPRESSION [None]
  - DIZZINESS [None]
  - FAECAL INCONTINENCE [None]
  - FALL [None]
  - FEAR [None]
  - NAUSEA [None]
  - NUCLEAR MAGNETIC RESONANCE IMAGING ABNORMAL [None]
  - STRESS [None]
  - SYNCOPE [None]
  - URINARY INCONTINENCE [None]
